FAERS Safety Report 7233632-6 (Version None)
Quarter: 2011Q1

REPORT INFORMATION
  Report Type: 
  Country: None (occurrence: None)
  Receive Date: 20110119
  Receipt Date: 20110111
  Transmission Date: 20110831
  Serious: Yes (Hospitalization)
  Sender: FDA-Public Use
  Company Number: CL-MERCK-1101CHL00002

PATIENT
  Age: 60 Year
  Sex: Male

DRUGS (1)
  1. JANUMET [Suspect]
     Indication: TYPE 2 DIABETES MELLITUS
     Route: 048
     Dates: start: 20080101, end: 20101101

REACTIONS (2)
  - PANCREATITIS CHRONIC [None]
  - PANCREATIC PSEUDOCYST [None]
